FAERS Safety Report 9953133 (Version 1)
Quarter: 2014Q1

REPORT INFORMATION
  Report Type: Report from Study
  Country: US (occurrence: US)
  Receive Date: 20140304
  Receipt Date: 20140304
  Transmission Date: 20141002
  Serious: Yes (Other)
  Sender: FDA-Public Use
  Company Number: US-ABBVIE-13P-163-1076923-00

PATIENT
  Age: 58 Year
  Sex: Male
  Weight: 71.73 kg

DRUGS (14)
  1. HUMIRA [Suspect]
     Indication: RHEUMATOID ARTHRITIS
     Dates: start: 2012
  2. AMOXICILLIN [Suspect]
     Indication: GASTROENTERITIS VIRAL
  3. CLOPIDOGREL [Concomitant]
     Indication: HYPERTENSION
  4. FOLIC ACID [Concomitant]
     Indication: VITAMIN SUPPLEMENTATION
  5. TRIAMTERENE [Concomitant]
     Indication: HYPERTENSION
  6. HYDROXYCHLORQUINE SULFATE [Concomitant]
     Indication: RHEUMATOID ARTHRITIS
  7. LANTUS [Concomitant]
     Indication: DIABETES MELLITUS
  8. METHOTREXATE [Concomitant]
     Indication: RHEUMATOID ARTHRITIS
  9. METOPROLOL [Concomitant]
     Indication: HYPERTENSION
  10. TRAMADOL [Concomitant]
     Indication: RHEUMATOID ARTHRITIS
  11. LISINOPRIL [Concomitant]
     Indication: HYPERTENSION
  12. ATORDASTATIN [Concomitant]
     Indication: BLOOD CHOLESTEROL INCREASED
  13. AMLODIPINE [Concomitant]
     Indication: HYPERTENSION
  14. ASPIRIN [Concomitant]
     Indication: CARDIAC DISORDER

REACTIONS (8)
  - Coronary artery occlusion [Recovered/Resolved]
  - Gastroenteritis viral [Recovering/Resolving]
  - Diarrhoea [Recovering/Resolving]
  - Vomiting [Recovering/Resolving]
  - Chest pain [Recovered/Resolved]
  - Chest pain [Recovered/Resolved]
  - Hyperhidrosis [Recovered/Resolved]
  - Coronary artery occlusion [Recovered/Resolved]
